FAERS Safety Report 5131564-0 (Version None)
Quarter: 2006Q4

REPORT INFORMATION
  Report Type: 
  Country: None (occurrence: None)
  Receive Date: 20061020
  Receipt Date: 20061006
  Transmission Date: 20070319
  Serious: Yes (Other)
  Sender: FDA-Public Use
  Company Number: GB-JNJFOC-20061002348

PATIENT
  Age: 15 Year
  Sex: Male

DRUGS (1)
  1. CONCERTA [Suspect]
     Indication: DRUG USE FOR UNKNOWN INDICATION
     Route: 048

REACTIONS (7)
  - DIZZINESS [None]
  - EYE ROLLING [None]
  - HALLUCINATION [None]
  - MENTAL STATUS CHANGES [None]
  - SOMNOLENCE [None]
  - SYNCOPE [None]
  - TACHYCARDIA [None]
